FAERS Safety Report 15932245 (Version 2)
Quarter: 2019Q1

REPORT INFORMATION
  Report Type: Spontaneous
  Country: US (occurrence: US)
  Receive Date: 20190207
  Receipt Date: 20190312
  Transmission Date: 20190417
  Serious: No
  Sender: FDA-Public Use
  Company Number: US-PFIZER INC-2019056472

PATIENT
  Age: 62 Year
  Sex: Female

DRUGS (1)
  1. XELJANZ [Suspect]
     Active Substance: TOFACITINIB CITRATE
     Indication: RHEUMATOID ARTHRITIS
     Dosage: 5 MG, 2X/DAY
     Route: 048
     Dates: start: 201807

REACTIONS (9)
  - Weight increased [Unknown]
  - Arthralgia [Unknown]
  - Asthenia [Unknown]
  - Drug effect incomplete [Unknown]
  - Sciatica [Recovered/Resolved]
  - Palpitations [Unknown]
  - Pain in extremity [Unknown]
  - Burning sensation [Unknown]
  - Anxiety [Unknown]
